FAERS Safety Report 16846131 (Version 1)
Quarter: 2019Q3

REPORT INFORMATION
  Report Type: Spontaneous
  Country: US (occurrence: US)
  Receive Date: 20190924
  Receipt Date: 20190924
  Transmission Date: 20191005
  Serious: Yes (Other)
  Sender: FDA-Public Use
  Company Number: US-TEVA-2019-US-1111441

PATIENT

DRUGS (1)
  1. VALSARTAN. [Suspect]
     Active Substance: VALSARTAN
     Route: 065

REACTIONS (4)
  - Liver disorder [Unknown]
  - Hepatic neoplasm [Unknown]
  - Renal neoplasm [Unknown]
  - Renal disorder [Unknown]
